FAERS Safety Report 7015402-7 (Version None)
Quarter: 2010Q3

REPORT INFORMATION
  Report Type: 
  Country: None (occurrence: None)
  Receive Date: 20100927
  Receipt Date: 20100916
  Transmission Date: 20110219
  Serious: Yes (Hospitalization)
  Sender: FDA-Public Use
  Company Number: FR-SANOFI-AVENTIS-2010SA054015

PATIENT
  Age: 94 Year
  Sex: Female

DRUGS (11)
  1. LASIX [Suspect]
     Route: 048
  2. ACETYLCYSTEINE [Suspect]
     Indication: LUNG INFECTION
     Route: 048
     Dates: start: 20091014
  3. BUDESONIDE [Suspect]
     Indication: LUNG INFECTION
     Route: 055
     Dates: start: 20091014
  4. ALPRAZOLAM [Suspect]
     Indication: PRODUCT USED FOR UNKNOWN INDICATION
     Route: 048
     Dates: start: 20091014, end: 20091026
  5. LORMETAZEPAM [Suspect]
     Indication: PRODUCT USED FOR UNKNOWN INDICATION
     Route: 048
     Dates: end: 20091026
  6. RIVOTRIL [Suspect]
     Indication: PRODUCT USED FOR UNKNOWN INDICATION
     Route: 048
     Dates: end: 20091026
  7. NEURONTIN [Suspect]
     Indication: PRODUCT USED FOR UNKNOWN INDICATION
     Route: 048
  8. DAFALGAN [Suspect]
     Indication: PRODUCT USED FOR UNKNOWN INDICATION
     Route: 048
  9. ZOLPIDEM [Concomitant]
     Indication: PRODUCT USED FOR UNKNOWN INDICATION
     Route: 048
     Dates: start: 20091001
  10. AMLODIPINE [Concomitant]
     Route: 048
  11. CEFTRIAXONE [Concomitant]
     Indication: LUNG INFECTION
     Route: 042
     Dates: start: 20091014, end: 20091020

REACTIONS (2)
  - ABNORMAL BEHAVIOUR [None]
  - HALLUCINATION [None]
